FAERS Safety Report 9276445 (Version 1)
Quarter: 2013Q2

REPORT INFORMATION
  Report Type: Spontaneous
  Country: DE (occurrence: DE)
  Receive Date: 20130507
  Receipt Date: 20130507
  Transmission Date: 20140414
  Serious: Yes (Life-Threatening, Hospitalization)
  Sender: FDA-Public Use
  Company Number: DE-ASTRAZENECA-2013SE10683

PATIENT
  Age: 1 Year
  Sex: Male

DRUGS (14)
  1. SYNAGIS [Suspect]
     Indication: ANTIVIRAL PROPHYLAXIS
     Route: 030
     Dates: start: 20121213, end: 20121213
  2. SYNAGIS [Suspect]
     Indication: ANTIVIRAL PROPHYLAXIS
     Route: 030
     Dates: start: 20130110, end: 20130110
  3. SYNAGIS [Suspect]
     Indication: ANTIVIRAL PROPHYLAXIS
     Route: 030
  4. CEFACLOR [Concomitant]
     Dates: end: 20130117
  5. NACL [Concomitant]
     Route: 055
  6. SALBUTAMOL [Concomitant]
     Dosage: 5 DROP FOUR TIMES A DAY
  7. PULMOZYME [Concomitant]
  8. PULMICORT [Concomitant]
     Route: 055
  9. OTRIVEN [Concomitant]
  10. VIGANTOLETTEN [Concomitant]
     Route: 048
  11. FERRO SANOL [Concomitant]
     Dosage: 6 DROPS FIVE TIMES A DAY
  12. HYDROCHLOROTHIAZIDE [Concomitant]
     Route: 048
  13. ALDACTONE [Concomitant]
     Route: 048
  14. LASIX [Concomitant]

REACTIONS (7)
  - H1N1 influenza [Unknown]
  - Cough [Unknown]
  - Respiratory acidosis [Unknown]
  - Vomiting [Unknown]
  - Diarrhoea [Unknown]
  - Cyanosis [Unknown]
  - Respiratory syncytial virus bronchiolitis [Recovered/Resolved]
